FAERS Safety Report 8116760-2 (Version None)
Quarter: 2012Q1

REPORT INFORMATION
  Report Type: 
  Country: None (occurrence: None)
  Receive Date: 20120206
  Receipt Date: 20120127
  Transmission Date: 20120608
  Serious: Yes (Hospitalization)
  Sender: FDA-Public Use
  Company Number: US-BAYER-2011-074780

PATIENT
  Age: 19 Year
  Sex: Female
  Weight: 120.18 kg

DRUGS (19)
  1. VICODIN [Concomitant]
     Dosage: UNK UNK, PRN
     Route: 048
  2. ALBUTEROL [Concomitant]
     Route: 055
  3. ONDANSETRON HCL [Concomitant]
     Dosage: 8 MG, PRN
  4. VENTOLIN [Concomitant]
     Dosage: UNK
     Dates: start: 20080901
  5. DECADRON [Concomitant]
     Route: 042
  6. ANCEF [Concomitant]
     Route: 042
  7. IRON [Concomitant]
     Dosage: UNK UNK, BID
     Route: 048
  8. PHENERGAN [Concomitant]
     Dosage: 25 MG, UNK
     Route: 054
  9. DEMEROL [Concomitant]
     Dosage: 50 MG, UNK
     Route: 048
  10. ZITHROMAX [Concomitant]
     Dosage: 500 MG, UNK
     Route: 042
  11. PROTONIX [Concomitant]
  12. OMEPRAZOLE [Concomitant]
     Dosage: 20 MG, QD
     Route: 048
  13. CHROMAGEN FA [Concomitant]
     Dosage: UNK UNK, QD
     Route: 048
  14. MORPHINE [Concomitant]
     Route: 042
  15. YAZ [Suspect]
     Dosage: UNK
     Dates: start: 20080801, end: 20090801
  16. PRENATAL VITAMINS [VIT C,B5,B12,D2,B3,B6,RETINOL PALMIT,B2,B1 MONO [Concomitant]
  17. MOTRIN [Concomitant]
     Dosage: 600 MG, UNK
     Route: 048
  18. REGLAN [Concomitant]
     Dosage: 10 MG, TID
  19. NEXIUM [Concomitant]
     Dosage: UNK UNK, PRN
     Route: 048

REACTIONS (5)
  - PAIN [None]
  - INJURY [None]
  - CHOLELITHIASIS [None]
  - GALLBLADDER INJURY [None]
  - GALLBLADDER CHOLESTEROLOSIS [None]
